FAERS Safety Report 9202609 (Version 2)
Quarter: 2013Q4

REPORT INFORMATION
  Report Type: Spontaneous
  Country: US (occurrence: US)
  Receive Date: 20130401
  Receipt Date: 20131202
  Transmission Date: 20140711
  Serious: Yes (Other)
  Sender: FDA-Public Use
  Company Number: US-BAYER-2013-038963

PATIENT
  Age: 17 Year
  Sex: Female

DRUGS (8)
  1. YASMIN [Suspect]
     Dosage: UNK
  2. OCELLA [Suspect]
     Dosage: UNK
  3. YAZ [Suspect]
     Dosage: UNK
  4. ZYRTEC [Concomitant]
     Dosage: UNK
  5. PROTONIX [Concomitant]
     Dosage: 40 MG, UNK
  6. PROPOXYPHENE NAPSYLATE W/ACETAMINOPHENE [Concomitant]
     Dosage: 100/650MG, UNK
  7. PROMETHAZINE [Concomitant]
     Dosage: 25 MG, UNK
  8. ASACOL [Concomitant]
     Dosage: 400 MG, UNK

REACTIONS (5)
  - Gallbladder injury [None]
  - Cholecystitis chronic [None]
  - Injury [None]
  - Pain [None]
  - Pain [None]
